FAERS Safety Report 21874323 (Version 2)
Quarter: 2023Q1

REPORT INFORMATION
  Report Type: Spontaneous
  Country: US (occurrence: US)
  Receive Date: 20230117
  Receipt Date: 20230224
  Transmission Date: 20230417
  Serious: No
  Sender: FDA-Public Use
  Company Number: US-GALDERMA-US2022019072

PATIENT

DRUGS (6)
  1. PROACTIV MD ADAPALENE ACNE TREATMENT [Suspect]
     Active Substance: ADAPALENE
     Indication: Papule
     Dosage: 1 DOSAGE FORM, BIW
     Route: 061
     Dates: start: 202211, end: 202211
  2. PROACTIV CLEAR SKIN SPF 30 [Concomitant]
     Active Substance: AVOBENZONE\OCTISALATE\OCTOCRYLENE
     Indication: Papule
     Dosage: 1 DOSAGE FORM, QD
     Route: 061
     Dates: start: 202211, end: 202211
  3. Proactiv MD Ultra Gentle Cleanser [Concomitant]
     Indication: Papule
     Dosage: 1 DOSAGE FORM, QD
     Route: 061
     Dates: start: 202211, end: 202211
  4. Proactiv MD Ultra Hydrating Moisturizer [Concomitant]
     Indication: Papule
     Dosage: 1 DOSAGE FORM, QD
     Route: 061
     Dates: start: 202211, end: 202211
  5. PROACTIV ACNE BODY WASH [Concomitant]
     Active Substance: SALICYLIC ACID
     Indication: Papule
     Dosage: 1 DOSAGE FORM, QD
     Route: 061
     Dates: start: 202211, end: 202211
  6. PROACTIV BLACKHEAD DISSOLVING [Concomitant]
     Active Substance: SALICYLIC ACID
     Indication: Papule
     Dosage: 1 DOSAGE FORM, QD
     Route: 061
     Dates: start: 202211, end: 202211

REACTIONS (5)
  - Erythema [Recovering/Resolving]
  - Acne [Recovering/Resolving]
  - Product use in unapproved indication [Recovered/Resolved]
  - Inappropriate schedule of product administration [Recovered/Resolved]
  - Underdose [Recovered/Resolved]

NARRATIVE: CASE EVENT DATE: 20221101
